FAERS Safety Report 4341834-1 (Version None)
Quarter: 2004Q2

REPORT INFORMATION
  Report Type: 
  Country: None (occurrence: None)
  Receive Date: 20040415
  Receipt Date: 20040329
  Transmission Date: 20050107
  Serious: Yes (Hospitalization)
  Sender: FDA-Public Use
  Company Number: GBT040301271

PATIENT
  Age: 67 Year
  Sex: Female
  Weight: 85 kg

DRUGS (11)
  1. GEMCITABINE HYDROCHLORIDE-IV (GEMCITABINE) [Suspect]
     Indication: NON-SMALL CELL LUNG CANCER
     Dosage: 1900  MG OTHER
     Route: 050
     Dates: start: 20030820
  2. DOCETAXEL [Suspect]
     Indication: NON-SMALL CELL LUNG CANCER
     Dosage: 140 MG OTHER
     Route: 050
     Dates: start: 20030820
  3. ZESTRIL [Concomitant]
  4. ISOSORBIDE MONONITRATE [Concomitant]
  5. FUROSEMIDE [Concomitant]
  6. SEREVENT [Concomitant]
  7. BECOTIDE (BECLOMETASONE DIPROPIONATE) [Concomitant]
  8. PRAVASTATIN [Concomitant]
  9. DILTIAZEM [Concomitant]
  10. CO-CODAMOL [Concomitant]
  11. VENTOLIN [Concomitant]

REACTIONS (6)
  - DIARRHOEA [None]
  - DYSPNOEA [None]
  - NEUTROPENIC SEPSIS [None]
  - PYREXIA [None]
  - RAYNAUD'S PHENOMENON [None]
  - WHEEZING [None]
